FAERS Safety Report 9280197 (Version 10)
Quarter: 2014Q2

REPORT INFORMATION
  Report Type: Report from Study
  Country: MY (occurrence: MY)
  Receive Date: 20130509
  Receipt Date: 20140424
  Transmission Date: 20141212
  Serious: Yes (Hospitalization, Disabling)
  Sender: FDA-Public Use
  Company Number: MY-ROCHE-1222827

PATIENT
  Age: 28 Year
  Sex: Female
  Weight: 95 kg

DRUGS (26)
  1. PEG-INTERFERON ALFA 2A [Suspect]
     Indication: HEPATITIS C
     Route: 058
     Dates: start: 20121214, end: 20130426
  2. PEG-INTERFERON ALFA 2A [Suspect]
     Route: 058
     Dates: end: 20130503
  3. RIBAVIRIN [Suspect]
     Indication: HEPATITIS C
     Dosage: EVERY AFTERNOON
     Route: 048
     Dates: start: 20121214, end: 20130103
  4. RIBAVIRIN [Suspect]
     Dosage: EVERY MORNING
     Route: 048
     Dates: start: 20121215, end: 20130103
  5. RIBAVIRIN [Suspect]
     Dosage: 3 DF AM
     Route: 048
     Dates: start: 20130104, end: 20130114
  6. RIBAVIRIN [Suspect]
     Dosage: 3 DF IN AM AND 3 DF IN PM
     Route: 048
     Dates: start: 20130115, end: 20130207
  7. RIBAVIRIN [Suspect]
     Dosage: 2 TABLETS AM AND 2 TABLETS PM
     Route: 048
     Dates: start: 20130209, end: 20130219
  8. RIBAVIRIN [Suspect]
     Dosage: 3 DF IN PM
     Route: 048
     Dates: start: 20130208, end: 20130212
  9. RIBAVIRIN [Suspect]
     Dosage: 1 DF IN AM, AND 2 DF IN PM
     Route: 048
     Dates: start: 20130220, end: 20130307
  10. RIBAVIRIN [Suspect]
     Dosage: 2 DF IN AM AND 2 DF IN PM
     Route: 048
     Dates: start: 20130308, end: 20130404
  11. RIBAVIRIN [Suspect]
     Route: 048
     Dates: start: 20130405, end: 20130502
  12. RIBAVIRIN [Suspect]
     Dosage: 1 DF PM
     Route: 048
     Dates: start: 20130410, end: 20130502
  13. RIBAVIRIN [Suspect]
     Route: 048
     Dates: start: 20130518, end: 20130518
  14. BOCEPREVIR [Suspect]
     Indication: HEPATITIS C
     Dosage: 4 TABLETS IN THE MORNING, AFTERNOON AND EVENING
     Route: 048
     Dates: start: 20130115, end: 20130215
  15. BOCEPREVIR [Suspect]
     Dosage: 4 DF, QAM, MORNING
     Route: 048
     Dates: start: 20130116, end: 20130207
  16. BOCEPREVIR [Suspect]
     Dosage: 4 DF, QPM, AFTERNOON
     Route: 048
     Dates: start: 20130208, end: 20130215
  17. BOCEPREVIR [Suspect]
     Dosage: 4 DF, QPM, EVENING
     Route: 048
     Dates: start: 20130208, end: 20130223
  18. BOCEPREVIR [Suspect]
     Dosage: 4 DF, QAM, MORNING
     Route: 048
     Dates: start: 20130209, end: 20130223
  19. BOCEPREVIR [Suspect]
     Dosage: 4 DF, QPM, AFTERNOON
     Route: 048
     Dates: start: 20130217, end: 20130307
  20. BOCEPREVIR [Suspect]
     Dosage: 4 DF, QPM, EVENING
     Route: 048
     Dates: start: 20130225, end: 20130307
  21. BOCEPREVIR [Suspect]
     Dosage: 4DF, QAM, MORNING, AFTERNOON AND EVENING
     Route: 048
     Dates: start: 20130308, end: 20130404
  22. BOCEPREVIR [Suspect]
     Dosage: 4DF, QPM, MORNING, AFTERNOON AND EVENING
     Route: 048
     Dates: start: 20130405, end: 20130502
  23. BOCEPREVIR [Suspect]
     Route: 048
     Dates: start: 20130518, end: 20130518
  24. VITAMIN E [Concomitant]
     Route: 065
     Dates: start: 201109
  25. FOLIC ACID [Concomitant]
     Indication: HAEMOGLOBIN DECREASED
     Route: 065
     Dates: start: 20130129
  26. ASCORBIC ACID [Concomitant]
     Route: 065
     Dates: start: 201109

REACTIONS (1)
  - Atrioventricular block first degree [Recovered/Resolved]
